FAERS Safety Report 4394949-6 (Version None)
Quarter: 2004Q3

REPORT INFORMATION
  Report Type: 
  Country: None (occurrence: None)
  Receive Date: 20040712
  Receipt Date: 20040628
  Transmission Date: 20050211
  Serious: Yes (Other)
  Sender: FDA-Public Use
  Company Number: NO-GLAXOSMITHKLINE-B0337740A

PATIENT
  Age: 31 Year
  Sex: Male

DRUGS (1)
  1. ZYBAN [Suspect]

REACTIONS (4)
  - AGGRESSION [None]
  - ASTHENIA [None]
  - DRY MOUTH [None]
  - ERYTHEMA [None]
